FAERS Safety Report 23274226 (Version 1)
Quarter: 2023Q4

REPORT INFORMATION
  Report Type: Spontaneous
  Country: US (occurrence: US)
  Receive Date: 20231208
  Receipt Date: 20231208
  Transmission Date: 20240110
  Serious: Yes (Other)
  Sender: FDA-Public Use
  Company Number: US-AUROBINDO-AUR-APL-2023-076027

PATIENT
  Age: 65 Year
  Sex: Male

DRUGS (5)
  1. MILRINONE LACTATE [Suspect]
     Active Substance: MILRINONE LACTATE
     Indication: Cardiomyopathy
     Dosage: 0.375 MICROGRAM/KILOGRAM (MIN)
     Route: 065
  2. MILRINONE LACTATE [Suspect]
     Active Substance: MILRINONE LACTATE
     Dosage: 0.5 MICROGRAM/KILOGRAM (MIN)
     Route: 065
  3. BUMETANIDE [Concomitant]
     Active Substance: BUMETANIDE
     Indication: Product used for unknown indication
     Dosage: 4 MILLIGRAM, TWO TIMES A DAY
     Route: 065
  4. SPIRONOLACTONE [Concomitant]
     Active Substance: SPIRONOLACTONE
     Indication: Product used for unknown indication
     Dosage: 50 MILLIGRAM, ONCE A DAY
     Route: 065
  5. WARFARIN [Concomitant]
     Active Substance: WARFARIN
     Indication: Product used for unknown indication
     Dosage: 5 MILLIGRAM, ONCE A DAY
     Route: 065

REACTIONS (1)
  - Drug ineffective [Unknown]
